FAERS Safety Report 5488888-7 (Version None)
Quarter: 2007Q4

REPORT INFORMATION
  Report Type: 
  Country: None (occurrence: None)
  Receive Date: 20071017
  Receipt Date: 20071010
  Transmission Date: 20080405
  Serious: Yes (Hospitalization)
  Sender: FDA-Public Use
  Company Number: CZ-SHR-CZ-2007-019412

PATIENT
  Age: 69 Year
  Sex: Male

DRUGS (2)
  1. ULTRAVIST 300 [Suspect]
     Route: 042
     Dates: start: 20070515
  2. LOZAP 50 [Concomitant]

REACTIONS (6)
  - ANGINA PECTORIS [None]
  - DYSPNOEA [None]
  - HYPERHIDROSIS [None]
  - PHARYNGOLARYNGEAL PAIN [None]
  - SOMNOLENCE [None]
  - SOPOR [None]
